FAERS Safety Report 25621135 (Version 3)
Quarter: 2025Q3

REPORT INFORMATION
  Report Type: Spontaneous
  Country: US (occurrence: US)
  Receive Date: 20250730
  Receipt Date: 20250912
  Transmission Date: 20251021
  Serious: No
  Sender: BRISTOL-MYERS SQUIBB COMPANY
  Company Number: US-BRISTOL-MYERS SQUIBB COMPANY-2025-106057

PATIENT
  Age: 86 Year
  Sex: Female

DRUGS (2)
  1. POMALYST [Suspect]
     Active Substance: POMALIDOMIDE
     Indication: Iron deficiency anaemia
  2. POMALYST [Suspect]
     Active Substance: POMALIDOMIDE

REACTIONS (2)
  - Constipation [Not Recovered/Not Resolved]
  - Off label use [Unknown]
